FAERS Safety Report 13726782 (Version 4)
Quarter: 2017Q4

REPORT INFORMATION
  Report Type: Report from Study
  Country: AU (occurrence: AU)
  Receive Date: 20170707
  Receipt Date: 20171217
  Transmission Date: 20180320
  Serious: Yes (Other)
  Sender: FDA-Public Use
  Company Number: PHHY2016AU168467

PATIENT
  Age: 52 Year
  Sex: Female

DRUGS (7)
  1. EFFEXOR [Concomitant]
     Active Substance: VENLAFAXINE HYDROCHLORIDE
     Indication: PRODUCT USED FOR UNKNOWN INDICATION
     Dosage: UNK
     Route: 065
     Dates: start: 2005
  2. VITAMIN D [Concomitant]
     Active Substance: CHOLECALCIFEROL
     Indication: PRODUCT USED FOR UNKNOWN INDICATION
     Dosage: UNK
     Route: 065
  3. CALCIUM [Concomitant]
     Active Substance: CALCIUM
     Indication: PRODUCT USED FOR UNKNOWN INDICATION
     Dosage: UNK
     Route: 065
  4. DITROPAN [Concomitant]
     Active Substance: OXYBUTYNIN CHLORIDE
     Indication: PRODUCT USED FOR UNKNOWN INDICATION
     Dosage: 3 DF, QD ((1 IN MORNING, 1 AT LUNCH AND 1 AT DINNER (IF NEEDED))
     Route: 065
     Dates: start: 2005
  5. OPTISLIM [Concomitant]
     Indication: PRODUCT USED FOR UNKNOWN INDICATION
     Dosage: UNK, TIW
     Route: 065
  6. GILENYA [Suspect]
     Active Substance: FINGOLIMOD HYDROCHLORIDE
     Indication: SECONDARY PROGRESSIVE MULTIPLE SCLEROSIS
     Dosage: UNK
     Route: 048
     Dates: start: 201012
  7. CLOFEN [Concomitant]
     Indication: MUSCLE TWITCHING
     Dosage: UNK
     Route: 065
     Dates: start: 2005

REACTIONS (17)
  - Peripheral venous disease [Not Recovered/Not Resolved]
  - Weight decreased [Recovering/Resolving]
  - Product use in unapproved indication [Unknown]
  - Band sensation [Recovered/Resolved]
  - Psychiatric symptom [Not Recovered/Not Resolved]
  - Fatigue [Unknown]
  - JC virus test positive [Not Recovered/Not Resolved]
  - Liver disorder [Not Recovered/Not Resolved]
  - Secondary progressive multiple sclerosis [Not Recovered/Not Resolved]
  - Decreased appetite [Unknown]
  - Malaise [Not Recovered/Not Resolved]
  - Depressed mood [Unknown]
  - Drug ineffective [Not Recovered/Not Resolved]
  - Hepatic cirrhosis [Recovered/Resolved]
  - Movement disorder [Not Recovered/Not Resolved]
  - Weight increased [Not Recovered/Not Resolved]
  - Limb discomfort [Recovering/Resolving]

NARRATIVE: CASE EVENT DATE: 2013
